FAERS Safety Report 7719179-9 (Version None)
Quarter: 2011Q3

REPORT INFORMATION
  Report Type: 
  Country: None (occurrence: None)
  Receive Date: 20110830
  Receipt Date: 20110825
  Transmission Date: 20111222
  Serious: Yes (Other)
  Sender: FDA-Public Use
  Company Number: PHHY2011GB75936

PATIENT
  Age: 67 Year
  Sex: Female

DRUGS (6)
  1. MIRTAZAPINE [Suspect]
     Dosage: 30 MG, UNK
     Dates: start: 20081101
  2. MIRTAZAPINE [Suspect]
     Dosage: 45 MG, UNK
     Dates: start: 20090501, end: 20090801
  3. MIRTAZAPINE [Suspect]
     Indication: PANIC ATTACK
     Dosage: 30 MG, UNK
     Dates: start: 20080601
  4. MIRTAZAPINE [Suspect]
     Dosage: 15 MG, UNK
  5. MIRTAZAPINE [Suspect]
     Dosage: 15 MG, UNK
     Dates: start: 20090301
  6. MIRTAZAPINE [Suspect]
     Dosage: 30 MG, UNK
     Dates: start: 20090401

REACTIONS (3)
  - HYPERTONIA [None]
  - PARKINSON'S DISEASE [None]
  - TREMOR [None]
